FAERS Safety Report 13106866 (Version 3)
Quarter: 2017Q1

REPORT INFORMATION
  Report Type: Spontaneous
  Country: US (occurrence: US)
  Receive Date: 20170111
  Receipt Date: 20170301
  Transmission Date: 20170428
  Serious: No
  Sender: FDA-Public Use
  Company Number: US-BIOMARINAP-US-2017-112332

PATIENT
  Sex: Female
  Weight: 46.7 kg

DRUGS (1)
  1. NAGLAZYME [Suspect]
     Active Substance: GALSULFASE
     Indication: MUCOPOLYSACCHARIDOSIS VI
     Dosage: UNK UNK, QW
     Route: 042
     Dates: start: 20130524

REACTIONS (4)
  - Musculoskeletal disorder [Unknown]
  - Intervertebral disc protrusion [Unknown]
  - Neuralgia [Unknown]
  - Foot fracture [Unknown]
